FAERS Safety Report 25999224 (Version 1)
Quarter: 2025Q4

REPORT INFORMATION
  Report Type: Spontaneous
  Country: JP (occurrence: JP)
  Receive Date: 20251105
  Receipt Date: 20251105
  Transmission Date: 20260118
  Serious: Yes (Other)
  Sender: ACCORD
  Company Number: JP-Accord-511250

PATIENT
  Age: 75 Year
  Sex: Male

DRUGS (2)
  1. CISPLATIN [Suspect]
     Active Substance: CISPLATIN
     Indication: Lung adenocarcinoma stage III
     Dosage: ON DAY 1 AND 8
     Dates: start: 201902
  2. TS-1 [Suspect]
     Active Substance: GIMERACIL\OTERACIL POTASSIUM\TEGAFUR
     Indication: Lung adenocarcinoma stage III
     Dosage: FOR 14 DAYS
     Route: 048
     Dates: start: 201902

REACTIONS (3)
  - Oesophageal ulcer [Recovered/Resolved]
  - Oesophageal stenosis [Recovering/Resolving]
  - Radiation oesophagitis [Recovered/Resolved]

NARRATIVE: CASE EVENT DATE: 20190301
